FAERS Safety Report 8883283 (Version 1)
Quarter: 2012Q4

REPORT INFORMATION
  Report Type: 
  Country: CA (occurrence: CA)
  Receive Date: 20121102
  Receipt Date: 20121102
  Transmission Date: 20130627
  Serious: Yes (Other)
  Sender: FDA-Public Use
  Company Number: CA-PFIZER INC-2012267811

PATIENT
  Age: 51 Year
  Sex: Male

DRUGS (3)
  1. CELEBREX [Suspect]
     Dosage: 200 mg, 2x/day
  2. DEMEROL [Concomitant]
     Dosage: UNK
  3. ATIVAN [Concomitant]
     Dosage: UNK

REACTIONS (2)
  - Atrial fibrillation [Recovered/Resolved]
  - Tachycardia [Recovered/Resolved]
